FAERS Safety Report 26144132 (Version 1)
Quarter: 2025Q4

REPORT INFORMATION
  Report Type: Spontaneous
  Country: US (occurrence: US)
  Receive Date: 20251211
  Receipt Date: 20251211
  Transmission Date: 20260118
  Serious: Yes (Hospitalization, Other)
  Sender: RANBAXY
  Company Number: US-SUN PHARMACEUTICAL INDUSTRIES INC-2025R1-540908

PATIENT
  Age: 40 Year
  Sex: Female

DRUGS (3)
  1. PHENTERMINE [Interacting]
     Active Substance: PHENTERMINE
     Indication: Weight decreased
     Dosage: 37.5 MILLIGRAM
     Route: 065
  2. FLUDROCORTISONE [Interacting]
     Active Substance: FLUDROCORTISONE
     Indication: Hypoaldosteronism
     Dosage: 0.1 MILLIGRAM, BID
     Route: 065
  3. FLUDROCORTISONE [Interacting]
     Active Substance: FLUDROCORTISONE
     Dosage: DECREASED HER EVENING DOSE TO 0.05 MG
     Route: 065

REACTIONS (3)
  - Syncope [Recovered/Resolved]
  - Drug interaction [Unknown]
  - Toxicity to various agents [Unknown]
